FAERS Safety Report 19579428 (Version 2)
Quarter: 2022Q4

REPORT INFORMATION
  Report Type: Spontaneous
  Country: US (occurrence: US)
  Receive Date: 20210720
  Receipt Date: 20221130
  Transmission Date: 20230113
  Serious: Yes (Other)
  Sender: FDA-Public Use
  Company Number: US-BEH-2021134016

PATIENT
  Age: 57 Year
  Sex: Female

DRUGS (21)
  1. HIZENTRA [Suspect]
     Active Substance: HUMAN IMMUNOGLOBULIN G
     Indication: Immunodeficiency common variable
     Dosage: 16 GRAM, QW
     Route: 058
     Dates: start: 201812
  2. HIZENTRA [Suspect]
     Active Substance: HUMAN IMMUNOGLOBULIN G
     Dosage: 13 GRAM, QW
     Route: 058
  3. HIZENTRA [Suspect]
     Active Substance: HUMAN IMMUNOGLOBULIN G
     Dosage: UNK
     Route: 065
     Dates: start: 20221121
  4. ACYCLOVIR [Concomitant]
     Active Substance: ACYCLOVIR
  5. ALLEGRA ALLERGY [Concomitant]
     Active Substance: FEXOFENADINE HYDROCHLORIDE
  6. CALCIUM [Concomitant]
     Active Substance: CALCIUM
  7. CHLORZOXAZONE [Concomitant]
     Active Substance: CHLORZOXAZONE
  8. EZETIMIBE [Concomitant]
     Active Substance: EZETIMIBE
  9. FLOMAX [Concomitant]
     Active Substance: TAMSULOSIN HYDROCHLORIDE
  10. FLONASE [Concomitant]
     Active Substance: FLUTICASONE PROPIONATE
  11. HYDROCHLOROTHIAZIDE [Concomitant]
     Active Substance: HYDROCHLOROTHIAZIDE
  12. HYDROCODONE BITARTRATE AND ACETAMINOPHEN [Concomitant]
     Active Substance: ACETAMINOPHEN\HYDROCODONE BITARTRATE
  13. ONDANSETRON [Concomitant]
     Active Substance: ONDANSETRON
  14. POTASSIUM CITRATE [Concomitant]
     Active Substance: POTASSIUM CITRATE
  15. PRIMIDONE [Concomitant]
     Active Substance: PRIMIDONE
  16. PROAIR HFA [Concomitant]
     Active Substance: ALBUTEROL SULFATE
  17. SINGULAIR [Concomitant]
     Active Substance: MONTELUKAST SODIUM
  18. SPIRIVA [Concomitant]
     Active Substance: TIOTROPIUM BROMIDE MONOHYDRATE
  19. SYNTHROID [Concomitant]
     Active Substance: LEVOTHYROXINE SODIUM
  20. CHOLECALCIFEROL [Concomitant]
     Active Substance: CHOLECALCIFEROL
  21. ATIVAN [Concomitant]
     Active Substance: LORAZEPAM

REACTIONS (20)
  - Renal disorder [Unknown]
  - Migraine [Unknown]
  - Infusion site erythema [Unknown]
  - Weight increased [Unknown]
  - Fatigue [Unknown]
  - Rhinorrhoea [Unknown]
  - Laryngitis [Unknown]
  - Infusion site pain [Recovering/Resolving]
  - Infusion site erythema [Unknown]
  - Headache [Unknown]
  - Migraine [Unknown]
  - Hypoaesthesia [Unknown]
  - Paraesthesia [Unknown]
  - Blood calcium decreased [Unknown]
  - Tremor [Unknown]
  - Dysphagia [Unknown]
  - Tracheomalacia [Unknown]
  - Stress [Unknown]
  - Incontinence [Unknown]
  - Renal papillary necrosis [Unknown]

NARRATIVE: CASE EVENT DATE: 20221101
